FAERS Safety Report 18902301 (Version 4)
Quarter: 2022Q2

REPORT INFORMATION
  Report Type: Spontaneous
  Country: JP (occurrence: JP)
  Receive Date: 20210216
  Receipt Date: 20220531
  Transmission Date: 20220721
  Serious: Yes (Death, Hospitalization)
  Sender: FDA-Public Use
  Company Number: JP-JNJFOC-20210226576

PATIENT
  Age: 62 Year
  Sex: Male

DRUGS (11)
  1. OPSUMIT [Suspect]
     Active Substance: MACITENTAN
     Indication: Pulmonary arterial hypertension
     Dosage: DOSE UNKNOWN
     Route: 048
     Dates: start: 20160622, end: 20170802
  2. DINOPROST [Concomitant]
     Active Substance: DINOPROST
     Dosage: DOSE UNKNOWN
     Route: 065
  3. OXYGEN [Concomitant]
     Active Substance: OXYGEN
     Route: 055
  4. EPOPROSTENOL SODIUM [Concomitant]
     Active Substance: EPOPROSTENOL SODIUM
     Indication: Pulmonary arterial hypertension
     Dosage: 0.5-9.7NG/KG/MIN
     Route: 041
     Dates: start: 20160725, end: 20161001
  5. AZOSEMIDE [Concomitant]
     Active Substance: AZOSEMIDE
     Indication: Right ventricular failure
     Route: 048
     Dates: end: 20170802
  6. ADCIRCA [Concomitant]
     Active Substance: TADALAFIL
     Indication: Pulmonary arterial hypertension
     Route: 048
     Dates: end: 20170802
  7. EPLERENONE [Concomitant]
     Active Substance: EPLERENONE
     Indication: Right ventricular failure
     Route: 048
     Dates: end: 20170802
  8. FUROSEMIDE [Concomitant]
     Active Substance: FUROSEMIDE
     Indication: Right ventricular failure
     Route: 048
     Dates: end: 20170802
  9. SAMSCA [Concomitant]
     Active Substance: TOLVAPTAN
     Indication: Right ventricular failure
     Route: 048
     Dates: start: 20161114, end: 20170802
  10. PIMOBENDAN [Concomitant]
     Active Substance: PIMOBENDAN
     Indication: Right ventricular failure
     Route: 048
     Dates: start: 20160902, end: 20170802
  11. TREPROSTINIL [Concomitant]
     Active Substance: TREPROSTINIL
     Indication: Pulmonary arterial hypertension
     Dosage: 3.4-22.7NG/KG/MIN
     Route: 041
     Dates: start: 20160926, end: 20170802

REACTIONS (3)
  - Right ventricular failure [Fatal]
  - Pulmonary arterial hypertension [Fatal]
  - Colon cancer [Recovering/Resolving]

NARRATIVE: CASE EVENT DATE: 20160717
